FAERS Safety Report 5651543-4 (Version None)
Quarter: 2008Q1

REPORT INFORMATION
  Report Type: 
  Country: None (occurrence: None)
  Receive Date: 20080305
  Receipt Date: 20080228
  Transmission Date: 20080703
  Serious: Yes (Life-Threatening, Hospitalization)
  Sender: FDA-Public Use
  Company Number: TW-SANOFI-SYNTHELABO-A01200802358

PATIENT
  Age: 54 Year
  Sex: Female

DRUGS (3)
  1. HYDROXYCHLOROQUINE SULFATE [Suspect]
     Indication: SYSTEMIC LUPUS ERYTHEMATOSUS
     Dosage: 400 MG
     Route: 065
  2. PREDNISOLONE [Suspect]
     Indication: SYSTEMIC LUPUS ERYTHEMATOSUS
     Dosage: 30 MG
     Route: 065
  3. PREDNISOLONE [Suspect]
     Dosage: 15 MG
     Route: 065

REACTIONS (5)
  - HYPERTENSION [None]
  - HYPOVOLAEMIC SHOCK [None]
  - MYCOTIC ANEURYSM [None]
  - OEDEMA PERIPHERAL [None]
  - SALMONELLOSIS [None]
